FAERS Safety Report 13429672 (Version 12)
Quarter: 2021Q4

REPORT INFORMATION
  Report Type: Report from Study
  Country: BR (occurrence: BR)
  Receive Date: 20170412
  Receipt Date: 20211007
  Transmission Date: 20220304
  Serious: Yes (Hospitalization, Other)
  Sender: FDA-Public Use
  Company Number: BR-TAKEDA-2017TUS007298

PATIENT
  Age: 38 Year
  Sex: Male
  Weight: 67 kg

DRUGS (4)
  1. VEDOLIZUMAB [Suspect]
     Active Substance: VEDOLIZUMAB
     Indication: Crohn^s disease
     Dosage: 300 MILLIGRAM
     Route: 042
     Dates: start: 20170316
  2. IDEBENONE [Suspect]
     Active Substance: IDEBENONE
     Indication: Product used for unknown indication
     Dosage: UNK
     Route: 065
  3. VENLAFAXINE [Concomitant]
     Active Substance: VENLAFAXINE HYDROCHLORIDE
     Dosage: 65 MILLIGRAM, QD
  4. VITAMIN D NOS [Concomitant]
     Active Substance: VITAMIN D NOS
     Dosage: UNK

REACTIONS (10)
  - Colectomy total [Recovered/Resolved]
  - Intestinal haemorrhage [Not Recovered/Not Resolved]
  - Thrombosis [Recovered/Resolved]
  - Anaemia [Recovering/Resolving]
  - SAPHO syndrome [Recovered/Resolved]
  - Ankylosing spondylitis [Recovered/Resolved]
  - Crohn^s disease [Not Recovered/Not Resolved]
  - Malaise [Recovered/Resolved]
  - Abdominal pain upper [Recovered/Resolved]
  - Off label use [Unknown]

NARRATIVE: CASE EVENT DATE: 20180101
